FAERS Safety Report 8250346-4 (Version None)
Quarter: 2012Q2

REPORT INFORMATION
  Report Type: 
  Country: None (occurrence: None)
  Receive Date: 20120402
  Receipt Date: 20120322
  Transmission Date: 20120825
  Serious: Yes (Other)
  Sender: FDA-Public Use
  Company Number: US-ASTRAZENECA-2012SE19764

PATIENT
  Age: 72 Year
  Sex: Female
  Weight: 63.5 kg

DRUGS (4)
  1. SYMBICORT [Suspect]
     Indication: CHRONIC OBSTRUCTIVE PULMONARY DISEASE
     Dosage: 160/4.5 MICROGRAMS, TWO TIMES DAILY.
     Route: 055
     Dates: start: 20060101
  2. PREDNISONE TAB [Concomitant]
  3. BROMIDE [Concomitant]
  4. ALBUTEROL [Concomitant]
     Indication: DYSPNOEA

REACTIONS (9)
  - VIRAL UPPER RESPIRATORY TRACT INFECTION [None]
  - DYSPNOEA [None]
  - GLOSSODYNIA [None]
  - DRY MOUTH [None]
  - MALAISE [None]
  - HEADACHE [None]
  - APHONIA [None]
  - PULMONARY CONGESTION [None]
  - WRONG TECHNIQUE IN DRUG USAGE PROCESS [None]
